FAERS Safety Report 14302484 (Version 1)
Quarter: 2017Q4

REPORT INFORMATION
  Report Type: Spontaneous
  Country: US (occurrence: US)
  Receive Date: 20171218
  Receipt Date: 20171218
  Transmission Date: 20180321
  Serious: No
  Sender: FDA-Public Use
  Company Number: None

PATIENT
  Age: 80 Year
  Sex: Female

DRUGS (2)
  1. IBRANCE [Suspect]
     Active Substance: PALBOCICLIB
     Indication: BREAST CANCER
     Dosage: 75MG DAILY FOR 21 DAYS ON, 7 DAYS OFF PO
     Route: 048
     Dates: start: 20161103
  2. IBRANCE [Suspect]
     Active Substance: PALBOCICLIB
     Indication: METASTASES TO LUNG
     Dosage: 75MG DAILY FOR 21 DAYS ON, 7 DAYS OFF PO
     Route: 048
     Dates: start: 20161103

REACTIONS (1)
  - Dyspnoea [None]

NARRATIVE: CASE EVENT DATE: 20171210
